APPROVED DRUG PRODUCT: AYGESTIN
Active Ingredient: NORETHINDRONE ACETATE
Strength: 5MG **Federal Register determination that product was not discontinued or withdrawn for safety or effectiveness reasons**
Dosage Form/Route: TABLET;ORAL
Application: N018405 | Product #001
Applicant: DURAMED RESEARCH INC
Approved: Apr 21, 1982 | RLD: Yes | RS: No | Type: DISCN